FAERS Safety Report 7670673-9 (Version None)
Quarter: 2011Q3

REPORT INFORMATION
  Report Type: 
  Country: None (occurrence: None)
  Receive Date: 20110809
  Receipt Date: 20110803
  Transmission Date: 20111222
  Serious: No
  Sender: FDA-Public Use
  Company Number: US-BIOGENIDEC-2011BI029332

PATIENT
  Sex: Female

DRUGS (4)
  1. BENADRYL [Concomitant]
     Indication: PREMEDICATION
  2. TYSABRI [Suspect]
     Indication: MULTIPLE SCLEROSIS
     Route: 042
     Dates: start: 20091228
  3. SOLU-MEDROL [Concomitant]
     Indication: PREMEDICATION
  4. ANTI-NAUSEA MEDICATION (NOS) [Concomitant]
     Indication: PREMEDICATION

REACTIONS (1)
  - NAUSEA [None]
